FAERS Safety Report 23146073 (Version 2)
Quarter: 2024Q1

REPORT INFORMATION
  Report Type: Spontaneous
  Country: DE (occurrence: DE)
  Receive Date: 20231104
  Receipt Date: 20240223
  Transmission Date: 20240409
  Serious: Yes (Hospitalization, Other)
  Sender: FDA-Public Use
  Company Number: DE-ROCHE-2353195

PATIENT
  Age: 69 Year
  Sex: Male

DRUGS (3)
  1. LEFLUNOMIDE [Suspect]
     Active Substance: LEFLUNOMIDE
     Indication: Rheumatoid arthritis
     Dosage: 20 MILLIGRAM, ONCE A DAY
     Route: 065
  2. TOCILIZUMAB [Suspect]
     Active Substance: TOCILIZUMAB
     Indication: Rheumatoid arthritis
     Dosage: 162 MILLIGRAM, EVERY WEEK
     Route: 058
  3. TOCILIZUMAB [Suspect]
     Active Substance: TOCILIZUMAB
     Dosage: 162 MILLIGRAM, EVERY WEEK
     Route: 042

REACTIONS (3)
  - Atrial fibrillation [Recovered/Resolved]
  - Pneumonia [Recovered/Resolved]
  - Cardioversion [Recovered/Resolved]

NARRATIVE: CASE EVENT DATE: 20190201
